FAERS Safety Report 7781519-2 (Version None)
Quarter: 2011Q3

REPORT INFORMATION
  Report Type: 
  Country: None (occurrence: None)
  Receive Date: 20110923
  Receipt Date: 20110912
  Transmission Date: 20111222
  Serious: Yes (Hospitalization)
  Sender: FDA-Public Use
  Company Number: GGEL20110901027

PATIENT
  Age: 36 Year
  Sex: Female

DRUGS (4)
  1. OXCARBAZEPINE [Suspect]
     Indication: CONVULSION
     Dosage: 1200 MILLIGRAM, 1 IN 1 D; 300 MILLIGRAM, 1 IN 1 D
  2. LACOSAMIDE [Suspect]
     Dosage: 100 MILLIGRAM, 1 IN 1 D,
  3. PHENYTOIN [Suspect]
     Indication: CONVULSION
  4. TOPIRAMATE [Suspect]
     Indication: CONVULSION

REACTIONS (4)
  - DRUG LEVEL DECREASED [None]
  - CONVULSION [None]
  - DIPLOPIA [None]
  - BALANCE DISORDER [None]
